FAERS Safety Report 24405581 (Version 1)
Quarter: 2024Q4

REPORT INFORMATION
  Report Type: Spontaneous
  Country: US (occurrence: None)
  Receive Date: 20241007
  Receipt Date: 20241007
  Transmission Date: 20250115
  Serious: Yes (Hospitalization)
  Sender: Public
  Company Number: None

PATIENT
  Sex: Male

DRUGS (11)
  1. XOLAIR PFS [Suspect]
     Active Substance: OMALIZUMAB
     Indication: Asthma
     Route: 058
     Dates: start: 20220128
  2. ATORVASTATIN [Concomitant]
     Active Substance: ATORVASTATIN
  3. CHLORHEX GLU SOL 0.12% [Concomitant]
  4. IBUPROFEN TAB 600MG [Concomitant]
  5. LISINOPRIL [Concomitant]
     Active Substance: LISINOPRIL
  6. MONTELUKAST SODIUM [Concomitant]
     Active Substance: MONTELUKAST SODIUM
  7. PANTOPRAZOLE TAB 40MG [Concomitant]
  8. PATANOL SOL0.1%OP [Concomitant]
  9. PULMICORT SUS 0.25MG/2 [Concomitant]
  10. QVAR AER 40MCG [Concomitant]
  11. QVAR REDIHA AER 80MCG [Concomitant]

REACTIONS (1)
  - Infection [None]
